FAERS Safety Report 7692809-6 (Version None)
Quarter: 2011Q3

REPORT INFORMATION
  Report Type: 
  Country: None (occurrence: None)
  Receive Date: 20110819
  Receipt Date: 20110815
  Transmission Date: 20111222
  Serious: Yes (Hospitalization, Other)
  Sender: FDA-Public Use
  Company Number: US-ELI_LILLY_AND_COMPANY-US201007007858

PATIENT
  Sex: Male
  Weight: 123.36 kg

DRUGS (12)
  1. DIOVAN [Concomitant]
  2. DYNACIRC [Concomitant]
  3. TEKTURNA [Concomitant]
  4. ALBUTEROL SULFATE AUTOHALER [Concomitant]
  5. PREVACID [Concomitant]
  6. NOVOLOG [Concomitant]
  7. COREG [Concomitant]
  8. BYETTA [Suspect]
     Dosage: UNK
     Dates: start: 20060901, end: 20090801
  9. BUMEX [Concomitant]
  10. LIPITOR [Concomitant]
  11. INSPRA [Concomitant]
  12. LANTUS [Concomitant]

REACTIONS (3)
  - RENAL FAILURE [None]
  - PANCREATITIS [None]
  - OFF LABEL USE [None]
